FAERS Safety Report 5174223-0 (Version None)
Quarter: 2006Q4

REPORT INFORMATION
  Report Type: 
  Country: None (occurrence: None)
  Receive Date: 20061214
  Receipt Date: 20061205
  Transmission Date: 20070319
  Serious: Yes (Hospitalization)
  Sender: FDA-Public Use
  Company Number: US-JNJFOC-20061201639

PATIENT
  Sex: Female
  Weight: 54.43 kg

DRUGS (4)
  1. DURAGESIC-100 [Suspect]
     Indication: PAIN
     Route: 062
  2. PREDNISONE TAB [Concomitant]
     Indication: PAIN
     Route: 065
  3. PEPCID [Concomitant]
     Indication: ULCER
     Route: 065
  4. XANAX [Concomitant]
     Indication: ANXIETY
     Route: 065

REACTIONS (5)
  - BRAIN NEOPLASM [None]
  - CONVULSION [None]
  - FALL [None]
  - LOWER LIMB FRACTURE [None]
  - SYNCOPE [None]
